FAERS Safety Report 6559464-X (Version None)
Quarter: 2010Q1

REPORT INFORMATION
  Report Type: 
  Country: None (occurrence: None)
  Receive Date: 20100129
  Receipt Date: 20090902
  Transmission Date: 20100710
  Serious: No
  Sender: FDA-Public Use
  Company Number: US-ABBOTT-09P-163-0595784-00

PATIENT
  Sex: Male

DRUGS (2)
  1. HUMIRA [Suspect]
     Indication: ARTHRITIS
     Dosage: DOSE SHOULD HAVE BEEN 160MG BUT ONE MALFUNCTIONED.
     Route: 058
     Dates: start: 20090830, end: 20090830
  2. CREAMS [Concomitant]
     Indication: ARTHRITIS

REACTIONS (1)
  - DRUG DOSE OMISSION [None]
